FAERS Safety Report 23049998 (Version 1)
Quarter: 2023Q4

REPORT INFORMATION
  Report Type: Spontaneous
  Country: FR (occurrence: FR)
  Receive Date: 20231010
  Receipt Date: 20231010
  Transmission Date: 20240109
  Serious: Yes (Life-Threatening, Other)
  Sender: FDA-Public Use
  Company Number: None

PATIENT
  Age: 42 Year
  Sex: Female

DRUGS (5)
  1. PIPERACILLIN SODIUM\TAZOBACTAM SODIUM [Suspect]
     Active Substance: PIPERACILLIN SODIUM\TAZOBACTAM SODIUM
     Indication: Bacterial infection
     Dosage: 4 G, QD?ROA-20045000
     Route: 042
     Dates: start: 20230609, end: 20230610
  2. PANTOPRAZOLE [Suspect]
     Active Substance: PANTOPRAZOLE
     Indication: Prophylaxis
     Dosage: 40 MG, QD
     Route: 065
     Dates: start: 20230601, end: 202307
  3. ACUPAN [Suspect]
     Active Substance: NEFOPAM HYDROCHLORIDE
     Indication: Procedural pain
     Dosage: 120 MG, QD?ROA-20045000
     Route: 042
     Dates: start: 20230531, end: 20230607
  4. CEFOTAXIME SODIUM [Suspect]
     Active Substance: CEFOTAXIME SODIUM
     Indication: Bacterial infection
     Dosage: 2 G, TID?ROA-20045000
     Route: 042
     Dates: start: 20230602, end: 20230609
  5. MORPHINE HYDROCHLORIDE [Suspect]
     Active Substance: MORPHINE HYDROCHLORIDE
     Indication: Procedural pain
     Dosage: 0.13 ML, QH?ROA-20045000
     Route: 042
     Dates: start: 20230531, end: 20230606

REACTIONS (4)
  - Behaviour disorder [Recovered/Resolved]
  - Persecutory delusion [Recovered/Resolved]
  - Impulsive behaviour [Recovered/Resolved]
  - Hallucination [Recovered/Resolved]
